FAERS Safety Report 4512983-X (Version None)
Quarter: 2004Q4

REPORT INFORMATION
  Report Type: 
  Country: None (occurrence: None)
  Receive Date: 20041124
  Receipt Date: 20041124
  Transmission Date: 20050328
  Serious: Yes (Hospitalization)
  Sender: FDA-Public Use
  Company Number: None

PATIENT
  Age: 81 Year
  Sex: Male

DRUGS (3)
  1. GLYBURIDE [Suspect]
     Indication: DIABETES MELLITUS
     Dosage: 10 MG BID
  2. METFORIN 1000 MG [Suspect]
     Indication: LOCALISED INFECTION
     Dosage: 1000 MG QD
     Dates: start: 20040810, end: 20040909
  3. AUGMENTIN '125' [Concomitant]

REACTIONS (3)
  - HYPOGLYCAEMIA [None]
  - LOCALISED INFECTION [None]
  - MENTAL STATUS CHANGES [None]
